FAERS Safety Report 21396906 (Version 1)
Quarter: 2022Q3

REPORT INFORMATION
  Report Type: Report from Study
  Country: ES (occurrence: ES)
  Receive Date: 20220930
  Receipt Date: 20220930
  Transmission Date: 20221026
  Serious: Yes (Hospitalization)
  Sender: FDA-Public Use
  Company Number: None

PATIENT

DRUGS (1)
  1. BELIMUMAB [Suspect]
     Active Substance: BELIMUMAB
     Indication: Systemic lupus erythematosus
     Dosage: 120 MG, 120 MG /4 WEEK
     Route: 042
     Dates: start: 20201118

REACTIONS (1)
  - Proteinuria [Recovered/Resolved with Sequelae]

NARRATIVE: CASE EVENT DATE: 20220131
